FAERS Safety Report 24902783 (Version 1)
Quarter: 2025Q1

REPORT INFORMATION
  Report Type: Spontaneous
  Country: US (occurrence: US)
  Receive Date: 20250130
  Receipt Date: 20250130
  Transmission Date: 20250409
  Serious: No
  Sender: TEVA
  Company Number: US-TEVA-VS-3286300

PATIENT

DRUGS (1)
  1. CEFDINIR [Suspect]
     Active Substance: CEFDINIR
     Indication: Urinary tract infection
     Route: 065

REACTIONS (3)
  - Trichoglossia [Unknown]
  - Hypersensitivity [Unknown]
  - Malaise [Unknown]
